FAERS Safety Report 4595753-6 (Version None)
Quarter: 2005Q1

REPORT INFORMATION
  Report Type: 
  Country: None (occurrence: None)
  Receive Date: 20050224
  Receipt Date: 20050224
  Transmission Date: 20050727
  Serious: Yes (Life-Threatening, Hospitalization)
  Sender: FDA-Public Use
  Company Number: None

PATIENT
  Age: 39 Year
  Sex: Female
  Weight: 69.4003 kg

DRUGS (1)
  1. IMITREX [Suspect]
     Dosage: AS NEEDED

REACTIONS (2)
  - CORONARY ARTERY DISSECTION [None]
  - MYOCARDIAL INFARCTION [None]
